FAERS Safety Report 6992973-8 (Version None)
Quarter: 2010Q3

REPORT INFORMATION
  Report Type: 
  Country: None (occurrence: None)
  Receive Date: 20100917
  Receipt Date: 20100907
  Transmission Date: 20110219
  Serious: Yes (Death, Hospitalization)
  Sender: FDA-Public Use
  Company Number: BR-SANOFI-AVENTIS-2010SA049037

PATIENT
  Age: 84 Year
  Sex: Male

DRUGS (11)
  1. TAXOTERE [Suspect]
     Indication: PROSTATE CANCER
     Dosage: EVERY 3 WEEKS
     Route: 041
     Dates: start: 20100719, end: 20100719
  2. TAXOTERE [Suspect]
     Dosage: EVERY 3 WEEKS
     Route: 041
     Dates: start: 20100329, end: 20100329
  3. BLINDED THERAPY [Suspect]
     Indication: PROSTATE CANCER
     Route: 048
     Dates: start: 20100329, end: 20100724
  4. PREDNISONE [Suspect]
     Indication: PROSTATE CANCER
     Route: 048
     Dates: start: 20100329, end: 20100724
  5. CODEINE [Concomitant]
     Dates: start: 20100722, end: 20100725
  6. SERTRALINE HYDROCHLORIDE [Concomitant]
     Dates: start: 20080101, end: 20100725
  7. SPIRONOLACTONE [Concomitant]
     Route: 048
     Dates: start: 20100719, end: 20100725
  8. HYDROCHLOROTHIAZIDE [Concomitant]
     Dates: start: 20100701, end: 20100701
  9. VALSARTAN [Concomitant]
  10. DIPYRONE [Concomitant]
  11. FUROSEMIDE [Concomitant]
     Dates: start: 20100701, end: 20100701

REACTIONS (4)
  - DEHYDRATION [None]
  - LUNG INFECTION [None]
  - RENAL FAILURE ACUTE [None]
  - SEPTIC SHOCK [None]
